FAERS Safety Report 14433801 (Version 5)
Quarter: 2018Q3

REPORT INFORMATION
  Report Type: Report from Study
  Country: US (occurrence: US)
  Receive Date: 20180124
  Receipt Date: 20180905
  Transmission Date: 20181010
  Serious: Yes (Death, Hospitalization, Other)
  Sender: FDA-Public Use
  Company Number: US-ACTELION-A-US2017-161623

PATIENT
  Age: 66 Year
  Sex: Female

DRUGS (18)
  1. DICLOFENAC [Concomitant]
     Active Substance: DICLOFENAC
  2. ZEGERID [Concomitant]
     Active Substance: OMEPRAZOLE\SODIUM BICARBONATE
  3. OPSUMIT [Suspect]
     Active Substance: MACITENTAN
     Indication: PULMONARY HYPERTENSION
     Dosage: 10 MG, QD
     Route: 048
  4. DIGOX [Concomitant]
     Active Substance: DIGOXIN
  5. NITROFURANTOIN. [Concomitant]
     Active Substance: NITROFURANTOIN
  6. PROAIR HFA [Concomitant]
     Active Substance: ALBUTEROL SULFATE
  7. MEPROBAMATE. [Concomitant]
     Active Substance: MEPROBAMATE
  8. FUROSEMIDE. [Concomitant]
     Active Substance: FUROSEMIDE
  9. TADALAFIL [Concomitant]
     Active Substance: TADALAFIL
  10. CLONIDINE. [Concomitant]
     Active Substance: CLONIDINE
  11. TESSALON [Concomitant]
     Active Substance: BENZONATATE
  12. ESCITALOPRAM [Concomitant]
     Active Substance: ESCITALOPRAM OXALATE
  13. CLINDAMYCIN. [Concomitant]
     Active Substance: CLINDAMYCIN
  14. LEVOFLOXACIN. [Concomitant]
     Active Substance: LEVOFLOXACIN
  15. AMBRISENTAN [Concomitant]
     Active Substance: AMBRISENTAN
  16. TRAMADOL. [Concomitant]
     Active Substance: TRAMADOL
  17. SPIRONOLACTONE. [Concomitant]
     Active Substance: SPIRONOLACTONE
  18. BUTALBITAL APAP CAFFEINE [Concomitant]

REACTIONS (9)
  - Pneumonia [Recovered/Resolved]
  - Headache [Unknown]
  - Fatigue [Unknown]
  - Death [Fatal]
  - Nausea [Unknown]
  - Tobacco abuse [Unknown]
  - Lung adenocarcinoma [Not Recovered/Not Resolved]
  - Pulmonary haemorrhage [Unknown]
  - Haemoptysis [Recovered/Resolved]

NARRATIVE: CASE EVENT DATE: 20180505
